FAERS Safety Report 18995768 (Version 2)
Quarter: 2023Q1

REPORT INFORMATION
  Report Type: Spontaneous
  Country: US (occurrence: US)
  Receive Date: 20210310
  Receipt Date: 20230227
  Transmission Date: 20230418
  Serious: No
  Sender: FDA-Public Use
  Company Number: US-SA-2020SA320507

PATIENT
  Age: 34 Year
  Sex: Female

DRUGS (1)
  1. DUPIXENT [Suspect]
     Active Substance: DUPILUMAB
     Dosage: 300 MG, QOW
     Route: 058
     Dates: start: 201111

REACTIONS (4)
  - Injection site nodule [Recovered/Resolved]
  - Wrong technique in product usage process [Unknown]
  - Injection site discharge [Unknown]
  - Injection site swelling [Recovered/Resolved]
